FAERS Safety Report 10274718 (Version 2)
Quarter: 2014Q3

REPORT INFORMATION
  Report Type: Spontaneous
  Country: CA (occurrence: CA)
  Receive Date: 20140702
  Receipt Date: 20140731
  Transmission Date: 20150326
  Serious: Yes (Hospitalization)
  Sender: FDA-Public Use
  Company Number: CA-009507513-1407CAN001230

PATIENT
  Age: 65 Year
  Sex: Male
  Weight: 48.73 kg

DRUGS (3)
  1. VICTRELIS TRIPLE [Suspect]
     Active Substance: BOCEPREVIR\PEGINTERFERON ALFA-2B\RIBAVIRIN
     Dosage: 166X200 MG
     Route: 048
     Dates: start: 20130604, end: 20140415
  2. VICTRELIS TRIPLE [Suspect]
     Active Substance: BOCEPREVIR\PEGINTERFERON ALFA-2B\RIBAVIRIN
     Dosage: 2X100 MCG PENS (0.5) ML
     Route: 065
     Dates: start: 20130604, end: 20140415
  3. VICTRELIS TRIPLE [Suspect]
     Active Substance: BOCEPREVIR\PEGINTERFERON ALFA-2B\RIBAVIRIN
     Dosage: 56X200 MG
     Route: 048
     Dates: start: 20130604, end: 20140415

REACTIONS (1)
  - Factor VIII deficiency [Recovered/Resolved]

NARRATIVE: CASE EVENT DATE: 20140413
